FAERS Safety Report 20356188 (Version 1)
Quarter: 2022Q1

REPORT INFORMATION
  Report Type: Spontaneous
  Country: US (occurrence: US)
  Receive Date: 20220120
  Receipt Date: 20220120
  Transmission Date: 20220424
  Serious: Yes (Other)
  Sender: FDA-Public Use
  Company Number: US-BAYER-2022A003938

PATIENT
  Age: 70 Year
  Sex: Male
  Weight: 102 kg

DRUGS (25)
  1. KERENDIA [Suspect]
     Active Substance: FINERENONE
     Dosage: UNK
     Dates: start: 202111, end: 202112
  2. KORLYM [Suspect]
     Active Substance: MIFEPRISTONE
     Indication: Cushing^s syndrome
     Dosage: 300 MG, QD
     Route: 048
     Dates: start: 20210928, end: 20211010
  3. KORLYM [Suspect]
     Active Substance: MIFEPRISTONE
     Indication: Cushing^s syndrome
     Dosage: 600 MG, QD
     Route: 048
     Dates: start: 20211011, end: 202112
  4. ASPIRIN [Concomitant]
     Active Substance: ASPIRIN
  5. BACLOFEN [Concomitant]
     Active Substance: BACLOFEN
  6. BENAZEPRIL [Concomitant]
     Active Substance: BENAZEPRIL HYDROCHLORIDE
  7. CHLORHEXIDINE [Concomitant]
     Active Substance: CHLORHEXIDINE
  8. FARXIGA [Concomitant]
     Active Substance: DAPAGLIFLOZIN PROPANEDIOL
  9. FEBUXOSTAT [Concomitant]
     Active Substance: FEBUXOSTAT
  10. FLUOCINOLONE [Concomitant]
     Active Substance: FLUOCINOLONE
  11. GAVILAX [Concomitant]
     Active Substance: POLYETHYLENE GLYCOL 3350
  12. INSULIN LISPRO [Concomitant]
     Active Substance: INSULIN LISPRO
  13. TRIAMCINOLONE [Concomitant]
     Active Substance: TRIAMCINOLONE
  14. MECLIZINE [Concomitant]
     Active Substance: MECLIZINE HYDROCHLORIDE
  15. NIFEDIPINE [Concomitant]
     Active Substance: NIFEDIPINE
  16. ONDANSETRON [Concomitant]
     Active Substance: ONDANSETRON
  17. PANTOPRAZOLE [Concomitant]
     Active Substance: PANTOPRAZOLE
  18. PROAIR HFA [Concomitant]
     Active Substance: ALBUTEROL SULFATE
  19. REPATHA [Concomitant]
     Active Substance: EVOLOCUMAB
  20. SODIUM BICARBONATE [Concomitant]
     Active Substance: SODIUM BICARBONATE
  21. TRESIBA [Concomitant]
     Active Substance: INSULIN DEGLUDEC
  22. VITAMIN D NOS [Concomitant]
     Active Substance: VITAMIN D NOS
  23. ZALEPLON [Concomitant]
     Active Substance: ZALEPLON
  24. KLOR-CON [Concomitant]
     Active Substance: POTASSIUM CHLORIDE
     Dosage: UNK
  25. KLOR-CON [Concomitant]
     Active Substance: POTASSIUM CHLORIDE
     Dosage: DOUBLE DOSE
     Dates: start: 202201

REACTIONS (7)
  - Hepatic enzyme increased [Recovering/Resolving]
  - Blood potassium decreased [Recovering/Resolving]
  - Pruritus [Recovering/Resolving]
  - Oedema [Recovering/Resolving]
  - Oedema peripheral [Recovering/Resolving]
  - Nausea [Not Recovered/Not Resolved]
  - Vomiting [Recovering/Resolving]

NARRATIVE: CASE EVENT DATE: 20211101
